FAERS Safety Report 24206706 (Version 1)
Quarter: 2024Q3

REPORT INFORMATION
  Report Type: Spontaneous
  Country: GR (occurrence: GR)
  Receive Date: 20240813
  Receipt Date: 20240813
  Transmission Date: 20241016
  Serious: No
  Sender: JAZZ
  Company Number: GR-JAZZ PHARMACEUTICALS-2024-GR-005338

PATIENT
  Age: 61 Year
  Sex: Male

DRUGS (1)
  1. VYXEOS [Suspect]
     Active Substance: CYTARABINE\DAUNORUBICIN
     Indication: Acute myeloid leukaemia
     Dosage: 44/100 MG/M2 (D1,3,5)

REACTIONS (1)
  - Congenital aplasia [Recovered/Resolved]
